FAERS Safety Report 5333488-2 (Version None)
Quarter: 2007Q2

REPORT INFORMATION
  Report Type: 
  Country: None (occurrence: None)
  Receive Date: 20070308
  Receipt Date: 20061212
  Transmission Date: 20071010
  Serious: No
  Sender: FDA-Public Use
  Company Number: 2006-BP-13478BP

PATIENT
  Sex: Male

DRUGS (11)
  1. SPIRIVA [Suspect]
     Indication: CHRONIC OBSTRUCTIVE PULMONARY DISEASE
     Dosage: SEE IMAGE
     Route: 055
     Dates: start: 20050101
  2. SPIRIVA [Suspect]
  3. AVAPRO [Concomitant]
  4. NIFEDIPINE [Concomitant]
  5. ALBUTEROL [Concomitant]
  6. FORADIL [Concomitant]
  7. FUROSEMIDE (FOROSEMIDE) [Concomitant]
  8. SPIRONOLACTONE [Concomitant]
  9. HYDROCHLOROTHIAZIDE [Concomitant]
  10. LOVASTATIN [Concomitant]
  11. ASPIRIN [Concomitant]

REACTIONS (4)
  - ANGINA PECTORIS [None]
  - CHEST PAIN [None]
  - DYSPNOEA [None]
  - FATIGUE [None]
